FAERS Safety Report 13681195 (Version 1)
Quarter: 2017Q2

REPORT INFORMATION
  Report Type: Spontaneous
  Country: US (occurrence: US)
  Receive Date: 20170622
  Receipt Date: 20170622
  Transmission Date: 20170830
  Serious: Yes (Hospitalization)
  Sender: FDA-Public Use
  Company Number: None

PATIENT
  Age: 59 Year
  Sex: Female
  Weight: 72 kg

DRUGS (1)
  1. SPIRONOLACTONE. [Suspect]
     Active Substance: SPIRONOLACTONE
     Route: 048
     Dates: start: 20170601, end: 20170603

REACTIONS (4)
  - Hypertension [None]
  - Palpitations [None]
  - Impaired work ability [None]
  - Product substitution issue [None]

NARRATIVE: CASE EVENT DATE: 20170601
